FAERS Safety Report 4279494-0 (Version None)
Quarter: 2004Q1

REPORT INFORMATION
  Report Type: 
  Country: None (occurrence: None)
  Receive Date: 20040123
  Receipt Date: 20040107
  Transmission Date: 20041129
  Serious: Yes (Hospitalization)
  Sender: FDA-Public Use
  Company Number: DSA_23809_2004

PATIENT
  Age: 27 Year
  Sex: Male

DRUGS (5)
  1. TAVOR [Suspect]
     Dates: start: 20040101, end: 20040101
  2. ACTRAPID MC [Suspect]
     Dosage: 60 IU ONCE SC
     Route: 058
     Dates: start: 20040101, end: 20040101
  3. MIDAZOLAM HCL [Suspect]
     Dosage: 40 MG ONCE PO
     Route: 048
     Dates: start: 20040101, end: 20040101
  4. ROHYPNOL [Suspect]
     Dosage: 9 MG ONCE PO
     Route: 048
     Dates: start: 20040101, end: 20040101
  5. VALIUM [Suspect]
     Dates: start: 20040101, end: 20040101

REACTIONS (3)
  - HYPOGLYCAEMIA [None]
  - INTENTIONAL OVERDOSE [None]
  - SOMNOLENCE [None]
